FAERS Safety Report 4303237-5 (Version None)
Quarter: 2004Q1

REPORT INFORMATION
  Report Type: 
  Country: None (occurrence: None)
  Receive Date: 20040223
  Receipt Date: 20040209
  Transmission Date: 20041129
  Serious: Yes (Death)
  Sender: FDA-Public Use
  Company Number: HQWYE883111FEB04

PATIENT
  Age: 69 Year
  Sex: Female

DRUGS (1)
  1. PREMPHASE (CONJUGATED ESTROGENS/MEDROXYPROGESTERONE ACETAET, TABLET) [Suspect]
     Indication: HORMONE REPLACEMENT THERAPY
     Dosage: ORAL
     Route: 048
     Dates: start: 19960530, end: 20020607

REACTIONS (1)
  - PULMONARY EMBOLISM [None]
